FAERS Safety Report 6042176-9 (Version None)
Quarter: 2009Q1

REPORT INFORMATION
  Report Type: 
  Country: None (occurrence: None)
  Receive Date: 20090116
  Receipt Date: 20090107
  Transmission Date: 20090719
  Serious: Yes (Other)
  Sender: FDA-Public Use
  Company Number: PHEH2009US00592

PATIENT
  Sex: Female

DRUGS (7)
  1. ZOMETA [Suspect]
     Indication: METASTASES TO BONE
     Dosage: 4 MG IV MONTHLY
     Route: 042
     Dates: start: 20020701, end: 20070201
  2. ZOMETA [Suspect]
     Indication: BREAST CANCER
  3. COREG [Concomitant]
  4. DIOVAN [Concomitant]
  5. ASPIRIN [Concomitant]
  6. PENICILLIN NOS [Concomitant]
  7. PERIDEX [Concomitant]

REACTIONS (2)
  - BONE DISORDER [None]
  - FISTULA [None]
